FAERS Safety Report 18816174 (Version 4)
Quarter: 2022Q3

REPORT INFORMATION
  Report Type: Report from Study
  Country: CA (occurrence: CA)
  Receive Date: 20210201
  Receipt Date: 20220712
  Transmission Date: 20221027
  Serious: Yes (Hospitalization, Other)
  Sender: FDA-Public Use
  Company Number: CA-GLAXOSMITHKLINE-CA2021AMR017917

PATIENT

DRUGS (1)
  1. MEPOLIZUMAB [Suspect]
     Active Substance: MEPOLIZUMAB
     Indication: Asthma
     Dosage: 100 MG, Z MONTHLY
     Route: 042
     Dates: start: 20171011

REACTIONS (10)
  - Obstructive airways disorder [Unknown]
  - Pneumonia [Unknown]
  - Thrombosis [Unknown]
  - Oedema peripheral [Unknown]
  - Rash [Unknown]
  - Fatigue [Unknown]
  - Malaise [Unknown]
  - Memory impairment [Unknown]
  - Blood pressure abnormal [Unknown]
  - Disorientation [Unknown]

NARRATIVE: CASE EVENT DATE: 20210119
